FAERS Safety Report 17309364 (Version 1)
Quarter: 2020Q1

REPORT INFORMATION
  Report Type: Spontaneous
  Country: US (occurrence: US)
  Receive Date: 20200123
  Receipt Date: 20200123
  Transmission Date: 20200409
  Serious: No
  Sender: FDA-Public Use
  Company Number: US-TEVA-2020-US-1171202

PATIENT
  Age: 74 Year
  Sex: Male

DRUGS (2)
  1. BUPRENORPHINE. [Suspect]
     Active Substance: BUPRENORPHINE
     Dosage: DOSE: 2 TABLETS A DAY
     Route: 065
     Dates: start: 202001
  2. BUPRENORPHINE. [Suspect]
     Active Substance: BUPRENORPHINE
     Indication: PAIN
     Dosage: DOSE: 4 TABLETS A DAY
     Route: 065
     Dates: start: 201711

REACTIONS (4)
  - Hyperhidrosis [Unknown]
  - Withdrawal syndrome [Unknown]
  - Constipation [Unknown]
  - Disturbance in attention [Unknown]
